FAERS Safety Report 4658786-7 (Version None)
Quarter: 2005Q2

REPORT INFORMATION
  Report Type: 
  Country: None (occurrence: None)
  Receive Date: 20050509
  Receipt Date: 20050426
  Transmission Date: 20051028
  Serious: Yes (Death)
  Sender: FDA-Public Use
  Company Number: USA-2005-0019997

PATIENT
  Age: 17 Year
  Sex: Female
  Weight: 55 kg

DRUGS (5)
  1. SPECTRACEF [Suspect]
     Indication: OFF LABEL USE
     Dosage: 200 MG, BID, ORAL
     Route: 048
     Dates: start: 20050331, end: 20050405
  2. SPECTRACEF [Suspect]
     Indication: SINUSITIS
     Dosage: 200 MG, BID, ORAL
     Route: 048
     Dates: start: 20050331, end: 20050405
  3. BURAZIN [Concomitant]
  4. TYLOL HOT [Concomitant]
  5. SIPROGUT [Concomitant]

REACTIONS (3)
  - RASH [None]
  - SKIN WRINKLING [None]
  - THERMAL BURN [None]
